FAERS Safety Report 10213726 (Version 3)
Quarter: 2014Q2

REPORT INFORMATION
  Report Type: Spontaneous
  Country: US (occurrence: None)
  Receive Date: 20140529
  Receipt Date: 20140612
  Transmission Date: 20141212
  Serious: Yes (Other)
  Sender: FDA-Public Use
  Company Number: 20140290

PATIENT
  Age: 66 Year
  Sex: Female

DRUGS (21)
  1. VENOFER [Suspect]
     Indication: IRON DEFICIENCY ANAEMIA
     Dosage: 300 MG OVER 60 MIN
     Route: 042
     Dates: start: 20140502, end: 20140502
  2. BROVANA (ARFORMOTEROL TARTRATE) [Concomitant]
  3. LEVOTHYROID (LEVOTHYROXINE) [Concomitant]
  4. PULMICORT (BUDESONIDE) [Concomitant]
  5. RESTASIS (CYCLOSPORINE) [Concomitant]
  6. TOPAMAX (TOPIRAMATE) [Concomitant]
  7. VITAMIN B12 [Concomitant]
  8. GLIPIZIDE [Concomitant]
  9. CRANBERRY CAPS [Concomitant]
  10. LUTEIN CAPS [Concomitant]
  11. MELATONIN [Concomitant]
  12. FISH OIL [Concomitant]
  13. SUSTANE GEL AND GTT [Concomitant]
  14. VITAMIN D [Concomitant]
  15. BABY ASA [Concomitant]
  16. TRAZADONE [Concomitant]
  17. METOPROLOL [Concomitant]
  18. BIOTIN [Concomitant]
  19. AMITRIPTYLINE HCL [Concomitant]
  20. METFORMIN [Concomitant]
  21. GRAPE SEED EXTRACT [Concomitant]

REACTIONS (8)
  - Hypotension [None]
  - Oedema [None]
  - Swollen tongue [None]
  - Urinary tract infection [None]
  - Fungal infection [None]
  - Oedema peripheral [None]
  - Dyspnoea [None]
  - Generalised erythema [None]
